FAERS Safety Report 19087764 (Version 2)
Quarter: 2021Q4

REPORT INFORMATION
  Report Type: Spontaneous
  Country: US (occurrence: US)
  Receive Date: 20210402
  Receipt Date: 20211006
  Transmission Date: 20220303
  Serious: Yes (Other)
  Sender: FDA-Public Use
  Company Number: 2021A231425

PATIENT
  Age: 23057 Day
  Sex: Female
  Weight: 91.2 kg

DRUGS (83)
  1. NEXIUM [Suspect]
     Active Substance: ESOMEPRAZOLE MAGNESIUM
     Indication: Gastrooesophageal reflux disease
     Route: 048
     Dates: start: 1989, end: 2018
  2. NEXIUM [Suspect]
     Active Substance: ESOMEPRAZOLE MAGNESIUM
     Indication: Gastrooesophageal reflux disease
     Dosage: 40.0MG UNKNOWN
     Route: 048
     Dates: start: 2001, end: 2020
  3. PRILOSEC [Suspect]
     Active Substance: OMEPRAZOLE MAGNESIUM
     Indication: Gastrooesophageal reflux disease
     Route: 048
     Dates: start: 1989, end: 2018
  4. PRILOSEC [Suspect]
     Active Substance: OMEPRAZOLE MAGNESIUM
     Indication: Gastrooesophageal reflux disease
     Dosage: GENERIC
     Route: 065
  5. PREVACID [Suspect]
     Active Substance: LANSOPRAZOLE
     Indication: Gastrooesophageal reflux disease
     Route: 065
     Dates: start: 1989, end: 2018
  6. PREVACID [Suspect]
     Active Substance: LANSOPRAZOLE
     Indication: Gastrooesophageal reflux disease
     Route: 065
     Dates: start: 1995, end: 2018
  7. PREVACID 24 HR [Suspect]
     Active Substance: LANSOPRAZOLE
     Indication: Gastrooesophageal reflux disease
     Route: 065
     Dates: start: 1989, end: 2018
  8. PREVACID 24 HR [Suspect]
     Active Substance: LANSOPRAZOLE
     Indication: Gastrooesophageal reflux disease
     Route: 065
     Dates: start: 2009, end: 2018
  9. PROTONIX [Suspect]
     Active Substance: PANTOPRAZOLE SODIUM
     Indication: Gastrooesophageal reflux disease
     Route: 065
     Dates: start: 1989, end: 2018
  10. PROTONIX [Suspect]
     Active Substance: PANTOPRAZOLE SODIUM
     Indication: Gastrooesophageal reflux disease
     Route: 065
     Dates: start: 2000, end: 2018
  11. LISINOPRIL [Concomitant]
     Active Substance: LISINOPRIL
     Indication: Blood pressure abnormal
  12. MELOXICAM [Concomitant]
     Active Substance: MELOXICAM
     Indication: Pain
  13. VITAMIN C [Concomitant]
     Active Substance: ASCORBIC ACID
     Indication: General physical condition
  14. VITAMIN D [Concomitant]
     Active Substance: VITAMIN D NOS
     Indication: General physical condition
  15. IRON [Concomitant]
     Active Substance: IRON
     Indication: General physical condition
  16. PROBIOTICS NOS [Concomitant]
     Active Substance: PROBIOTICS NOS
     Indication: General physical condition
  17. IBUPROFEN [Concomitant]
     Active Substance: IBUPROFEN
     Indication: Pain
  18. TYLENOL [Concomitant]
     Active Substance: ACETAMINOPHEN
     Indication: Pain
  19. PEPCID [Concomitant]
     Active Substance: FAMOTIDINE
  20. ZANTAC [Concomitant]
     Active Substance: RANITIDINE HYDROCHLORIDE
  21. TUMS [Concomitant]
     Active Substance: CALCIUM CARBONATE
  22. ALKA-SELTZER [Concomitant]
     Active Substance: ANHYDROUS CITRIC ACID\ASPIRIN\SODIUM BICARBONATE
  23. MILK OG MAGNESIA [Concomitant]
  24. NITROFURANTOIN [Concomitant]
     Active Substance: NITROFURANTOIN
  25. TRIAMTERENE [Concomitant]
     Active Substance: TRIAMTERENE
  26. GABAPENTIN [Concomitant]
     Active Substance: GABAPENTIN
  27. CLONIDINE [Concomitant]
     Active Substance: CLONIDINE
  28. CITALOPRAM [Concomitant]
     Active Substance: CITALOPRAM HYDROBROMIDE
  29. POTASSIUM CHLORIDE [Concomitant]
     Active Substance: POTASSIUM CHLORIDE
  30. TEMAZEPAM [Concomitant]
     Active Substance: TEMAZEPAM
  31. ESCIN\LEVOTHYROXINE [Concomitant]
     Active Substance: ESCIN\LEVOTHYROXINE
  32. ZOLPIDEM TARTRATE [Concomitant]
     Active Substance: ZOLPIDEM TARTRATE
  33. PROPRANOLOL [Concomitant]
     Active Substance: PROPRANOLOL HYDROCHLORIDE
  34. TRILPIX [Concomitant]
  35. ACARBOSE [Concomitant]
     Active Substance: ACARBOSE
  36. DOXEPIN [Concomitant]
     Active Substance: DOXEPIN
  37. FENOFIBRATE [Concomitant]
     Active Substance: FENOFIBRATE
  38. BUPROPION [Concomitant]
     Active Substance: BUPROPION
  39. ACETAMINOPHEN\OXYCODONE HYDROCHLORIDE [Concomitant]
     Active Substance: ACETAMINOPHEN\OXYCODONE HYDROCHLORIDE
  40. PRIMIDONE [Concomitant]
     Active Substance: PRIMIDONE
  41. CELEBREX [Concomitant]
     Active Substance: CELECOXIB
  42. BACTROBAN [Concomitant]
     Active Substance: MUPIROCIN\MUPIROCIN CALCIUM
  43. ALUMINIUM HYDROXIDE/PHENYLBUTAZONE/METHOCARBAMOL/DEXAMETHASONE [Concomitant]
  44. PREMARIN [Concomitant]
     Active Substance: ESTROGENS, CONJUGATED
  45. CARDIZEM [Concomitant]
     Active Substance: DILTIAZEM HYDROCHLORIDE
  46. NAPRELAN [Concomitant]
     Active Substance: NAPROXEN SODIUM
  47. TRAZODONE [Concomitant]
     Active Substance: TRAZODONE HYDROCHLORIDE
  48. PAXIL [Concomitant]
     Active Substance: PAROXETINE HYDROCHLORIDE
  49. DICLOFENAC [Concomitant]
     Active Substance: DICLOFENAC
  50. PHENERGAN [Concomitant]
     Active Substance: PROMETHAZINE HYDROCHLORIDE
  51. MEPERIDINE [Concomitant]
     Active Substance: MEPERIDINE
  52. TOPROL XL [Concomitant]
     Active Substance: METOPROLOL SUCCINATE
  53. EPIFOAM [Concomitant]
     Active Substance: HYDROCORTISONE ACETATE\PRAMOXINE HYDROCHLORIDE
  54. HYDROXYZINE HYDROCHLORIDE [Concomitant]
     Active Substance: HYDROXYZINE HYDROCHLORIDE
  55. SERZONE [Concomitant]
     Active Substance: NEFAZODONE HYDROCHLORIDE
  56. ASACOL [Concomitant]
     Active Substance: MESALAMINE
  57. PIROXICAM [Concomitant]
     Active Substance: PIROXICAM
  58. AUGMENTIN [Concomitant]
     Active Substance: AMOXICILLIN\CLAVULANATE POTASSIUM
  59. PROFEN [Concomitant]
     Active Substance: DEXTROMETHORPHAN HYDRIODIDE\DEXTROMETHORPHAN HYDROBROMIDE\GUAIFENESIN\PSEUDOEPHEDRINE HYDROCHLORIDE
  60. SKELAXIN [Concomitant]
     Active Substance: METAXALONE
  61. ZANAFLEX [Concomitant]
     Active Substance: TIZANIDINE HYDROCHLORIDE
  62. IMITREX [Concomitant]
     Active Substance: SUMATRIPTAN SUCCINATE
  63. CYCLOBENZAPRINE [Concomitant]
     Active Substance: CYCLOBENZAPRINE
  64. VIOXX [Concomitant]
     Active Substance: ROFECOXIB
  65. ULTRACET [Concomitant]
     Active Substance: ACETAMINOPHEN\TRAMADOL HYDROCHLORIDE
  66. GUAIFENESIN\PSEUDOEPHEDRINE HYDROCHLORIDE [Concomitant]
     Active Substance: GUAIFENESIN\PSEUDOEPHEDRINE HYDROCHLORIDE
  67. HYZAAR [Concomitant]
     Active Substance: HYDROCHLOROTHIAZIDE\LOSARTAN POTASSIUM
  68. HEMOCYTE [Concomitant]
  69. MIRTAZAPINE [Concomitant]
     Active Substance: MIRTAZAPINE
  70. BEXTRA [Concomitant]
     Active Substance: VALDECOXIB
  71. TOPAMAX [Concomitant]
     Active Substance: TOPIRAMATE
  72. ARTHROTEC [Concomitant]
     Active Substance: DICLOFENAC SODIUM\MISOPROSTOL
  73. EFFEXOR [Concomitant]
     Active Substance: VENLAFAXINE HYDROCHLORIDE
  74. QUINININE [Concomitant]
  75. BENZONATATE [Concomitant]
     Active Substance: BENZONATATE
  76. SEROQUEL [Concomitant]
     Active Substance: QUETIAPINE FUMARATE
  77. ETODOLAC [Concomitant]
     Active Substance: ETODOLAC
  78. LIDODERM [Concomitant]
     Active Substance: LIDOCAINE
  79. LYRICA [Concomitant]
     Active Substance: PREGABALIN
  80. HYDROCHLOROTHIAZIDE [Concomitant]
     Active Substance: HYDROCHLOROTHIAZIDE
  81. DARVOCET [Concomitant]
     Active Substance: ACETAMINOPHEN\PROPOXYPHENE HYDROCHLORIDE
  82. HYDROMORPHONE [Concomitant]
     Active Substance: HYDROMORPHONE
  83. BETAMETHASONE/KETOROLAC [Concomitant]

REACTIONS (2)
  - Chronic kidney disease [Not Recovered/Not Resolved]
  - Gastrooesophageal reflux disease [Not Recovered/Not Resolved]

NARRATIVE: CASE EVENT DATE: 20121228
